FAERS Safety Report 18599619 (Version 1)
Quarter: 2020Q4

REPORT INFORMATION
  Report Type: Spontaneous
  Country: US (occurrence: US)
  Receive Date: 20201209
  Receipt Date: 20201209
  Transmission Date: 20210114
  Serious: No
  Sender: FDA-Public Use
  Company Number: None

PATIENT
  Age: 45 Year
  Sex: Male
  Weight: 72.9 kg

DRUGS (1)
  1. XIAFLEX [Suspect]
     Active Substance: COLLAGENASE CLOSTRIDIUM HISTOLYTICUM
     Indication: PLANTAR FASCIAL FIBROMATOSIS
     Route: 026
     Dates: start: 20200814, end: 20200819

REACTIONS (1)
  - Ligament rupture [None]

NARRATIVE: CASE EVENT DATE: 20200819
